FAERS Safety Report 5220528-4 (Version None)
Quarter: 2007Q1

REPORT INFORMATION
  Report Type: 
  Country: None (occurrence: None)
  Receive Date: 20070125
  Receipt Date: 20070125
  Transmission Date: 20070707
  Serious: Yes (Hospitalization)
  Sender: FDA-Public Use
  Company Number: None

PATIENT
  Sex: Female
  Weight: 65.318 kg

DRUGS (6)
  1. SKELAXIN [Suspect]
     Indication: MUSCLE RELAXANT THERAPY
     Dosage: 800 MG PO TID
     Route: 048
  2. BIRTH CONTROL PILLS [Concomitant]
  3. CYMBALTA [Concomitant]
  4. ADVAIR DISKUS 100/50 [Concomitant]
  5. PROVENTIL [Concomitant]
  6. VICOPROFEN [Concomitant]

REACTIONS (3)
  - ALCOHOL USE [None]
  - DYSTONIA [None]
  - TREMOR [None]
